FAERS Safety Report 25767298 (Version 1)
Quarter: 2025Q3

REPORT INFORMATION
  Report Type: Spontaneous
  Country: US (occurrence: None)
  Receive Date: 20250904
  Receipt Date: 20250904
  Transmission Date: 20251020
  Serious: Yes (Life-Threatening, Hospitalization)
  Sender: FDA-CTU
  Company Number: None

PATIENT
  Age: 41 Year
  Sex: Female
  Weight: 132 kg

DRUGS (1)
  1. KEYTRUDA [Suspect]
     Active Substance: PEMBROLIZUMAB
     Indication: Colorectal cancer
     Dosage: FREQUENCY : EVERY THREE WEEKS;?
     Route: 042

REACTIONS (3)
  - Myocarditis [None]
  - Vasculitis [None]
  - Cardiac failure acute [None]

NARRATIVE: CASE EVENT DATE: 20250904
